FAERS Safety Report 8363467-2 (Version None)
Quarter: 2012Q2

REPORT INFORMATION
  Report Type: 
  Country: None (occurrence: None)
  Receive Date: 20120514
  Receipt Date: 20120426
  Transmission Date: 20120825
  Serious: Yes (Hospitalization, Other)
  Sender: FDA-Public Use
  Company Number: 2012RR-56072

PATIENT
  Age: 80 Year
  Sex: Female

DRUGS (1)
  1. METFORMIN HCL [Suspect]
     Indication: DIABETES MELLITUS

REACTIONS (11)
  - PNEUMONIA [None]
  - COLITIS ISCHAEMIC [None]
  - CONTINUOUS HAEMODIAFILTRATION [None]
  - RECTAL HAEMORRHAGE [None]
  - NERVOUS SYSTEM DISORDER [None]
  - RENAL FAILURE [None]
  - DEHYDRATION [None]
  - LACTIC ACIDOSIS [None]
  - PYELONEPHRITIS [None]
  - SEPTIC SHOCK [None]
  - CONDITION AGGRAVATED [None]
